FAERS Safety Report 11980704 (Version 2)
Quarter: 2020Q2

REPORT INFORMATION
  Report Type: Spontaneous
  Country: CA (occurrence: CA)
  Receive Date: 20160129
  Receipt Date: 20200611
  Transmission Date: 20200713
  Serious: Yes (Death)
  Sender: FDA-Public Use
  Company Number: CA-009507513-1601CAN010882

PATIENT
  Age: 47 Year
  Sex: Male
  Weight: 57 kg

DRUGS (2)
  1. IMOVANE [Concomitant]
     Active Substance: ZOPICLONE
  2. REMERON RD [Suspect]
     Active Substance: MIRTAZAPINE
     Indication: DEPRESSION
     Dosage: 15 MILLIGRAM,1 EVERY 1 (DAYS)
     Route: 048
     Dates: start: 20110908, end: 2014

REACTIONS (1)
  - Completed suicide [Fatal]

NARRATIVE: CASE EVENT DATE: 2014
